FAERS Safety Report 9305573 (Version 1)
Quarter: 2013Q2

REPORT INFORMATION
  Report Type: Spontaneous
  Country: US (occurrence: None)
  Receive Date: 20130520
  Receipt Date: 20130520
  Transmission Date: 20140414
  Serious: Yes (Hospitalization, Other)
  Sender: FDA-Public Use
  Company Number: DAV-AE-GEM-13-01

PATIENT
  Age: 81 Year
  Sex: Male

DRUGS (8)
  1. GEMFIBROZIL [Suspect]
     Indication: LIPIDS INCREASED
     Route: 048
  2. SIMVASTATIN [Suspect]
     Indication: LIPIDS INCREASED
  3. ASPIRIN [Concomitant]
  4. CLOPIDOGREL [Concomitant]
  5. ISOSORBIDE DINITRATE [Concomitant]
  6. FUROSEMIDE [Suspect]
  7. METOPROLOL TARTRATE [Concomitant]
  8. OMEPRAZOLE [Concomitant]

REACTIONS (3)
  - Rhabdomyolysis [None]
  - Renal failure acute [None]
  - Acute myocardial infarction [None]
